FAERS Safety Report 4511367-8 (Version None)
Quarter: 2004Q4

REPORT INFORMATION
  Report Type: 
  Country: None (occurrence: None)
  Receive Date: 20041123
  Receipt Date: 20041123
  Transmission Date: 20050328
  Serious: Yes (Hospitalization)
  Sender: FDA-Public Use
  Company Number: None

PATIENT
  Age: 70 Year
  Sex: Male
  Weight: 72.1219 kg

DRUGS (15)
  1. CYTOXAN [Suspect]
     Indication: NON-HODGKIN'S LYMPHOMA
     Dosage: Q 21 DAYS IV
     Route: 042
     Dates: start: 20041109, end: 20041122
  2. ADRIAMYCIN PFS [Suspect]
     Indication: NON-HODGKIN'S LYMPHOMA
     Dosage: Q 21 DAYS IV
     Route: 042
     Dates: start: 20041109, end: 20041122
  3. VINCRISTINE [Suspect]
     Indication: NON-HODGKIN'S LYMPHOMA
     Dosage: Q 21 DAYS IV
     Route: 042
     Dates: start: 20041109, end: 20041122
  4. RITUXAN [Suspect]
     Indication: NON-HODGKIN'S LYMPHOMA
     Dosage: 700 MG  Q 21 DAYS IV
     Route: 042
     Dates: start: 20041109, end: 20041122
  5. MONOPRIL [Concomitant]
  6. TENORMIN [Concomitant]
  7. COMPAZINE [Concomitant]
  8. LIPITOR [Concomitant]
  9. DIURILL [Concomitant]
  10. NIASPAN [Concomitant]
  11. ASPIRIN [Concomitant]
  12. IMODIUM [Concomitant]
  13. PEPCID AC [Concomitant]
  14. DICYCLOMINE [Concomitant]
  15. PREDNISONE [Suspect]
     Indication: NON-HODGKIN'S LYMPHOMA
     Dosage: Q21 DAYS IV
     Route: 042

REACTIONS (1)
  - FEBRILE NEUTROPENIA [None]
